FAERS Safety Report 9758464 (Version 1)
Quarter: 2013Q4

REPORT INFORMATION
  Report Type: Spontaneous
  Country: US (occurrence: None)
  Receive Date: 20131216
  Receipt Date: 20131216
  Transmission Date: 20140711
  Serious: No
  Sender: FDA-Public Use
  Company Number: CABO-13002499

PATIENT
  Age: 80 Year
  Sex: Male

DRUGS (2)
  1. COMETRIQ [Suspect]
     Indication: PROSTATE CANCER
     Dosage: 60 MG, QD, ORAL?40 MG QD, ORAL
  2. COMETRIQ [Suspect]
     Indication: HEPATIC CANCER
     Dosage: 60 MG, QD, ORAL?40 MG QD, ORAL

REACTIONS (15)
  - Dry mouth [None]
  - Hot flush [None]
  - Dry eye [None]
  - Eye pain [None]
  - Lacrimation increased [None]
  - Pain in extremity [None]
  - Dizziness [None]
  - Nausea [None]
  - Fatigue [None]
  - Paraesthesia [None]
  - Abdominal pain [None]
  - Oropharyngeal pain [None]
  - Diarrhoea [None]
  - Oedema peripheral [None]
  - Pain [None]
